FAERS Safety Report 26025761 (Version 1)
Quarter: 2025Q4

REPORT INFORMATION
  Report Type: Spontaneous
  Country: EU (occurrence: EU)
  Receive Date: 20251111
  Receipt Date: 20251111
  Transmission Date: 20260118
  Serious: Yes (Other)
  Sender: Onesource Specialty Pharma
  Company Number: EU-STRIDES ARCOLAB LIMITED-2025OS001132

PATIENT
  Sex: Female

DRUGS (9)
  1. MYCOPHENOLATE MOFETIL [Suspect]
     Active Substance: MYCOPHENOLATE MOFETIL
     Indication: Immune-mediated hepatitis
     Dosage: UNK
     Route: 065
     Dates: start: 2025
  2. METHYLPREDNISOLONE [Suspect]
     Active Substance: METHYLPREDNISOLONE
     Indication: Immune-mediated hepatitis
     Dosage: 2 MILLIGRAM/KILOGRAM, QD, HIGH DOSE; FURTHER TAPERED TO 32MG PER DAY
     Route: 042
     Dates: start: 2025
  3. METHYLPREDNISOLONE [Suspect]
     Active Substance: METHYLPREDNISOLONE
     Dosage: UNK, STEROID TAPERING TO 32 MG/DAY
     Route: 042
     Dates: start: 2025
  4. PEMBROLIZUMAB [Concomitant]
     Active Substance: PEMBROLIZUMAB
     Indication: Vulval cancer
     Dosage: UNK
     Route: 065
  5. PEMBROLIZUMAB [Concomitant]
     Active Substance: PEMBROLIZUMAB
     Indication: Metastatic malignant melanoma
  6. IPILIMUMAB [Concomitant]
     Active Substance: IPILIMUMAB
     Indication: Vulval cancer
     Dosage: UNK
     Route: 065
     Dates: end: 20250305
  7. IPILIMUMAB [Concomitant]
     Active Substance: IPILIMUMAB
     Indication: Metastatic malignant melanoma
  8. NIVOLUMAB [Concomitant]
     Active Substance: NIVOLUMAB
     Indication: Vulval cancer
     Dosage: UNK
     Route: 065
     Dates: end: 20250305
  9. NIVOLUMAB [Concomitant]
     Active Substance: NIVOLUMAB
     Indication: Metastatic malignant melanoma

REACTIONS (2)
  - Hepatitis [None]
  - Off label use [Unknown]

NARRATIVE: CASE EVENT DATE: 20250101
